FAERS Safety Report 5675578-0 (Version None)
Quarter: 2008Q1

REPORT INFORMATION
  Report Type: 
  Country: None (occurrence: None)
  Receive Date: 20080321
  Receipt Date: 20080317
  Transmission Date: 20080703
  Serious: Yes (Other)
  Sender: FDA-Public Use
  Company Number: US-JNJFOC-20080304387

PATIENT
  Age: 34 Year
  Sex: Female

DRUGS (1)
  1. LEVAQUIN [Suspect]
     Indication: PREMEDICATION
     Route: 065

REACTIONS (2)
  - HYPOTENSION [None]
  - TACHYCARDIA [None]
